FAERS Safety Report 4808299-4 (Version None)
Quarter: 2005Q4

REPORT INFORMATION
  Report Type: 
  Country: None (occurrence: None)
  Receive Date: 20051021
  Receipt Date: 20030106
  Transmission Date: 20060501
  Serious: Yes (Other)
  Sender: FDA-Public Use
  Company Number: US_030191356

PATIENT
  Age: 26 Year
  Sex: Female
  Weight: 80 kg

DRUGS (4)
  1. ZYPREXA [Suspect]
     Indication: PSYCHOTIC DISORDER
     Dosage: 10 MG/DAY
     Dates: start: 20020601
  2. ZYPREXA [Suspect]
     Indication: SCHIZOPHRENIA
     Dosage: 10 MG/DAY
     Dates: start: 20020601
  3. TOPAMAX [Concomitant]
  4. LEVOMEPROMAZINE MALEATE [Concomitant]

REACTIONS (1)
  - THROMBOCYTOPENIA [None]
